FAERS Safety Report 7457289-4 (Version None)
Quarter: 2011Q2

REPORT INFORMATION
  Report Type: 
  Country: None (occurrence: None)
  Receive Date: 20110504
  Receipt Date: 20110503
  Transmission Date: 20111010
  Serious: No
  Sender: FDA-Public Use
  Company Number: US-JNJFOC-20110408462

PATIENT
  Sex: Female
  Weight: 59.88 kg

DRUGS (2)
  1. FENTANYL [Suspect]
     Route: 062
  2. FENTANYL [Suspect]
     Indication: PAIN
     Route: 062

REACTIONS (2)
  - DRUG DOSE OMISSION [None]
  - DRUG INEFFECTIVE [None]
